FAERS Safety Report 18901859 (Version 1)
Quarter: 2021Q1

REPORT INFORMATION
  Report Type: Other
  Country: A1 (occurrence: A1)
  Receive Date: 20210216
  Receipt Date: 20210216
  Transmission Date: 20210420
  Serious: No
  Sender: FDA-Public Use
  Company Number: A1-ADAPTIS PHARMA PRIVATE LIMITED-2106845

PATIENT
  Age: 41 Year
  Sex: Female

DRUGS (3)
  1. TIROFIBAN HYDROCHLORIDE. [Concomitant]
     Active Substance: TIROFIBAN HYDROCHLORIDE
     Route: 065
  2. CLOPIDOGREL BISULFATE. [Suspect]
     Active Substance: CLOPIDOGREL BISULFATE
     Indication: ANTIPLATELET THERAPY
     Route: 065
  3. ASPIRIN. [Concomitant]
     Active Substance: ASPIRIN
     Route: 065

REACTIONS (2)
  - Acute myocardial infarction [Unknown]
  - Drug resistance [Unknown]
